FAERS Safety Report 10015807 (Version 1)
Quarter: 2014Q1

REPORT INFORMATION
  Report Type: Spontaneous
  Country: US (occurrence: US)
  Receive Date: 20140317
  Receipt Date: 20140317
  Transmission Date: 20141002
  Serious: No
  Sender: FDA-Public Use
  Company Number: US-TEVA-463503USA

PATIENT
  Age: 35 Year
  Sex: Male

DRUGS (1)
  1. PROAIR HFA [Suspect]
     Route: 055

REACTIONS (2)
  - Dyspnoea [Recovering/Resolving]
  - Product quality issue [Unknown]
